FAERS Safety Report 17680743 (Version 2)
Quarter: 2025Q3

REPORT INFORMATION
  Report Type: Spontaneous
  Country: EU (occurrence: EU)
  Receive Date: 20200417
  Receipt Date: 20250804
  Transmission Date: 20251021
  Serious: Yes (Life-Threatening, Other)
  Sender: MYLAN
  Company Number: EU-ASTRAZENECA-2020SE39557

PATIENT
  Age: 60 Year
  Sex: Female

DRUGS (20)
  1. METFORMIN [Suspect]
     Active Substance: METFORMIN HYDROCHLORIDE
     Indication: Product used for unknown indication
     Dosage: 1000 MILLIGRAM, BID, NON-AZ PRODUCT
  2. METFORMIN [Suspect]
     Active Substance: METFORMIN HYDROCHLORIDE
     Dosage: 1000 MILLIGRAM, BID, NON-AZ PRODUCT
     Route: 065
  3. METFORMIN [Suspect]
     Active Substance: METFORMIN HYDROCHLORIDE
     Dosage: 1000 MILLIGRAM, BID, NON-AZ PRODUCT
     Route: 065
  4. METFORMIN [Suspect]
     Active Substance: METFORMIN HYDROCHLORIDE
     Dosage: 1000 MILLIGRAM, BID, NON-AZ PRODUCT
  5. DAPAGLIFLOZIN [Suspect]
     Active Substance: DAPAGLIFLOZIN
     Indication: Product used for unknown indication
     Dosage: 5 MILLIGRAM, BID
  6. DAPAGLIFLOZIN [Suspect]
     Active Substance: DAPAGLIFLOZIN
     Dosage: 5 MILLIGRAM, BID
     Route: 048
  7. DAPAGLIFLOZIN [Suspect]
     Active Substance: DAPAGLIFLOZIN
     Dosage: 5 MILLIGRAM, BID
     Route: 048
  8. DAPAGLIFLOZIN [Suspect]
     Active Substance: DAPAGLIFLOZIN
     Dosage: 5 MILLIGRAM, BID
  9. INSULIN NOS [Concomitant]
     Active Substance: INSULIN NOS
  10. INSULIN NOS [Concomitant]
     Active Substance: INSULIN NOS
     Route: 065
  11. INSULIN NOS [Concomitant]
     Active Substance: INSULIN NOS
     Route: 065
  12. INSULIN NOS [Concomitant]
     Active Substance: INSULIN NOS
  13. INSULIN ASPART [Concomitant]
     Active Substance: INSULIN ASPART
  14. INSULIN ASPART [Concomitant]
     Active Substance: INSULIN ASPART
     Route: 065
  15. INSULIN ASPART [Concomitant]
     Active Substance: INSULIN ASPART
     Route: 065
  16. INSULIN ASPART [Concomitant]
     Active Substance: INSULIN ASPART
  17. INSULIN ASPART [Concomitant]
     Active Substance: INSULIN ASPART
  18. INSULIN ASPART [Concomitant]
     Active Substance: INSULIN ASPART
     Route: 065
  19. INSULIN ASPART [Concomitant]
     Active Substance: INSULIN ASPART
     Route: 065
  20. INSULIN ASPART [Concomitant]
     Active Substance: INSULIN ASPART

REACTIONS (1)
  - Diabetic ketoacidosis [Recovering/Resolving]
